FAERS Safety Report 10305485 (Version 2)
Quarter: 2014Q4

REPORT INFORMATION
  Report Type: Other
  Country: IT (occurrence: IT)
  Receive Date: 20140715
  Receipt Date: 20141211
  Transmission Date: 20150528
  Serious: Yes (Life-Threatening, Hospitalization)
  Sender: FDA-Public Use
  Company Number: IT-MYLANLABS-2014S1016041

PATIENT

DRUGS (7)
  1. DEPAKIN [Interacting]
     Active Substance: VALPROATE SODIUM
     Indication: DEPRESSION
     Dosage: 750 MG,QD
     Route: 048
     Dates: start: 20130311, end: 20130903
  2. CIPRALEX [Interacting]
     Active Substance: ESCITALOPRAM OXALATE
     Indication: DEPRESSION
     Dosage: 5 GTT,QD
     Route: 048
     Dates: start: 20130311, end: 20130903
  3. VENLAFAXINE [Interacting]
     Active Substance: VENLAFAXINE HYDROCHLORIDE
     Indication: DEPRESSION
     Dosage: 150 MG,QD
     Route: 048
     Dates: start: 20130311, end: 20130903
  4. AKINETON [Interacting]
     Active Substance: BIPERIDEN HYDROCHLORIDE
     Indication: DEPRESSION
     Dosage: 4 MG,QD
     Route: 048
     Dates: start: 20130311, end: 20130903
  5. TRANQUIRIT [Interacting]
     Active Substance: DIAZEPAM
     Indication: DEPRESSION
     Dosage: 20 GTT,QD
     Route: 048
     Dates: start: 20130311, end: 20130903
  6. LORAZEPAM. [Suspect]
     Active Substance: LORAZEPAM
     Indication: DEPRESSION
     Dosage: 7.5 MG,QD
     Route: 048
     Dates: start: 20130311, end: 20130903
  7. INVEGA [Interacting]
     Active Substance: PALIPERIDONE
     Indication: DEPRESSION
     Dosage: 9 MG,QD
     Route: 048
     Dates: start: 20130311, end: 20130903

REACTIONS (2)
  - Coma [Recovered/Resolved]
  - Drug interaction [Recovered/Resolved]

NARRATIVE: CASE EVENT DATE: 20130903
